FAERS Safety Report 8606583-X (Version None)
Quarter: 2012Q3

REPORT INFORMATION
  Report Type: 
  Country: None (occurrence: None)
  Receive Date: 20120820
  Receipt Date: 20120810
  Transmission Date: 20120928
  Serious: Yes (Hospitalization)
  Sender: FDA-Public Use
  Company Number: JP-EISAI INC-E7389-02635-CLI-JP

PATIENT
  Sex: Female
  Weight: 41.5 kg

DRUGS (16)
  1. FRANDOL S [Concomitant]
     Indication: PROPHYLAXIS
     Route: 065
  2. HALAVEN [Suspect]
     Indication: METASTASES TO LYMPH NODES
     Route: 041
     Dates: start: 20110929, end: 20111006
  3. NITRAZEPAM [Concomitant]
     Indication: PROPHYLAXIS
     Route: 048
  4. HALAVEN [Suspect]
     Indication: METASTASES TO BONE
     Route: 041
     Dates: start: 20110818, end: 20110825
  5. MEDROXYPROGESTERONE ACETATE [Concomitant]
     Indication: BREAST CANCER RECURRENT
     Route: 065
  6. PURSENNID [Concomitant]
     Indication: PROPHYLAXIS
     Route: 048
  7. HALAVEN [Suspect]
     Indication: BREAST CANCER RECURRENT
     Route: 041
     Dates: start: 20111110
  8. EPADEL S [Concomitant]
     Indication: LIPIDS INCREASED
     Route: 048
  9. FENTANYL-100 [Concomitant]
     Indication: CANCER PAIN
     Route: 065
  10. ARIMIDEX [Concomitant]
     Indication: BREAST CANCER RECURRENT
     Route: 065
  11. PRAVASTATIN SODIUM [Concomitant]
     Indication: LIPIDS INCREASED
     Route: 048
  12. HALAVEN [Suspect]
     Indication: METASTASES TO SKIN
  13. ZOMETA [Concomitant]
     Indication: METASTASES TO BONE
     Route: 041
  14. KYTRIL [Concomitant]
     Route: 041
  15. FERROSTEC [Concomitant]
     Indication: PROPHYLAXIS
     Route: 048
  16. MS CONTIN [Concomitant]
     Indication: CANCER PAIN
     Route: 048

REACTIONS (1)
  - INFLUENZA [None]
